FAERS Safety Report 8923109 (Version 1)
Quarter: 2012Q4

REPORT INFORMATION
  Report Type: Spontaneous
  Country: US (occurrence: None)
  Receive Date: 20121115
  Receipt Date: 20121115
  Transmission Date: 20130627
  Serious: Yes (Life-Threatening, Hospitalization)
  Sender: FDA-Public Use
  Company Number: None

PATIENT
  Age: 65 Year
  Sex: Female

DRUGS (1)
  1. STIVARGA [Suspect]
     Indication: COLON CANCER
     Dosage: 4tablets 21days/28day cycle po qam
     Route: 048
     Dates: start: 20121020, end: 20121101

REACTIONS (4)
  - Pyrexia [None]
  - Rash generalised [None]
  - Platelet count decreased [None]
  - Fatigue [None]
